FAERS Safety Report 11099127 (Version 1)
Quarter: 2015Q2

REPORT INFORMATION
  Report Type: Spontaneous
  Country: CA (occurrence: CA)
  Receive Date: 20150508
  Receipt Date: 20150508
  Transmission Date: 20150821
  Serious: Yes (Other)
  Sender: FDA-Public Use
  Company Number: CA-ROCHE-1573561

PATIENT
  Sex: Female

DRUGS (6)
  1. RITUXAN [Suspect]
     Active Substance: RITUXIMAB
     Dosage: SINCE 4TH CYCLE
     Route: 042
     Dates: start: 20150113
  2. RITUXAN [Suspect]
     Active Substance: RITUXIMAB
     Dosage: FOR FIRST 2 CYCLES
     Route: 042
     Dates: start: 20140501
  3. METHOTREXATE [Concomitant]
     Active Substance: METHOTREXATE
     Indication: RHEUMATOID ARTHRITIS
     Route: 048
  4. RITUXAN [Suspect]
     Active Substance: RITUXIMAB
     Indication: NON-HODGKIN^S LYMPHOMA
     Dosage: FOR 6 CYCLES
     Route: 042
     Dates: start: 20130602
  5. RITUXAN [Suspect]
     Active Substance: RITUXIMAB
     Dosage: FOR 3RD CYCLE
     Route: 042
  6. BENDAMUSTINE [Concomitant]
     Active Substance: BENDAMUSTINE
     Route: 065
     Dates: start: 20130702

REACTIONS (6)
  - Necrosis [Not Recovered/Not Resolved]
  - Rash [Not Recovered/Not Resolved]
  - Allergic granulomatous angiitis [Unknown]
  - Off label use [Unknown]
  - Rheumatoid arthritis [Unknown]
  - Vasculitis [Unknown]

NARRATIVE: CASE EVENT DATE: 2015
